FAERS Safety Report 5744464-X (Version None)
Quarter: 2008Q2

REPORT INFORMATION
  Report Type: 
  Country: None (occurrence: None)
  Receive Date: 20080516
  Receipt Date: 20080501
  Transmission Date: 20081010
  Serious: Yes (Hospitalization)
  Sender: FDA-Public Use
  Company Number: 2008AL003181

PATIENT
  Sex: Male

DRUGS (1)
  1. DIGOXIN [Suspect]

REACTIONS (3)
  - CARDIAC FAILURE CONGESTIVE [None]
  - DYSPNOEA [None]
  - NAUSEA [None]
